FAERS Safety Report 18441745 (Version 1)
Quarter: 2020Q4

REPORT INFORMATION
  Report Type: Spontaneous
  Country: NL (occurrence: NL)
  Receive Date: 20201029
  Receipt Date: 20201029
  Transmission Date: 20210114
  Serious: Yes (Death, Hospitalization, Other)
  Sender: FDA-Public Use
  Company Number: NL-MSNLABS-2020MSNLIT00392

PATIENT
  Age: 57 Year
  Sex: Male

DRUGS (4)
  1. INTERFERON-GAMMA [Suspect]
     Active Substance: INTERFERON GAMMA
     Indication: MYCOBACTERIAL INFECTION
     Dosage: UNKNOWN
     Route: 065
  2. AMIKACIN. [Suspect]
     Active Substance: AMIKACIN
     Indication: MYCOBACTERIAL INFECTION
     Dosage: UNKNOWN
     Route: 065
  3. MOXIFLOXACIN TABLETS 400 MG [Suspect]
     Active Substance: MOXIFLOXACIN
     Indication: MYCOBACTERIAL INFECTION
     Dosage: UNKNOWN
     Route: 065
  4. CLOFAZIMIN [Suspect]
     Active Substance: CLOFAZIMINE
     Indication: MYCOBACTERIAL INFECTION
     Dosage: UNKNOWN
     Route: 065

REACTIONS (3)
  - Pneumonia [Fatal]
  - Multiple organ dysfunction syndrome [Fatal]
  - Treatment failure [Fatal]
